FAERS Safety Report 18849341 (Version 2)
Quarter: 2021Q1

REPORT INFORMATION
  Report Type: Spontaneous
  Country: US (occurrence: US)
  Receive Date: 20210205
  Receipt Date: 20210208
  Transmission Date: 20210419
  Serious: No
  Sender: FDA-Public Use
  Company Number: NVSC2021US027166

PATIENT
  Age: 88 Year
  Sex: Male

DRUGS (1)
  1. VOLTAREN [Suspect]
     Active Substance: DICLOFENAC SODIUM
     Indication: PAIN
     Dosage: UNK
     Route: 065

REACTIONS (3)
  - Product administered at inappropriate site [Recovered/Resolved]
  - Drug effective for unapproved indication [Recovered/Resolved]
  - Product use in unapproved indication [Recovered/Resolved]
